FAERS Safety Report 8595769-9 (Version None)
Quarter: 2012Q3

REPORT INFORMATION
  Report Type: 
  Country: None (occurrence: None)
  Receive Date: 20120815
  Receipt Date: 20120809
  Transmission Date: 20120928
  Serious: Yes (Hospitalization, Other)
  Sender: FDA-Public Use
  Company Number: KR-ELI_LILLY_AND_COMPANY-KR201208003806

PATIENT
  Age: 74 Year
  Sex: Male

DRUGS (1)
  1. HUMALOG MIX 50/50 [Suspect]
     Indication: TYPE 2 DIABETES MELLITUS
     Dosage: 16 U, TID
     Route: 058

REACTIONS (4)
  - PYREXIA [None]
  - ESCHERICHIA SEPSIS [None]
  - FALL [None]
  - DECREASED IMMUNE RESPONSIVENESS [None]
